FAERS Safety Report 17888220 (Version 1)
Quarter: 2020Q2

REPORT INFORMATION
  Report Type: Spontaneous
  Country: US (occurrence: US)
  Receive Date: 20200611
  Receipt Date: 20200611
  Transmission Date: 20200714
  Serious: Yes (Death)
  Sender: FDA-Public Use
  Company Number: None

PATIENT
  Age: 77 Year
  Sex: Male
  Weight: 70.6 kg

DRUGS (3)
  1. REMDESIVIR. [Suspect]
     Active Substance: REMDESIVIR
     Indication: COVID-19
     Dosage: ?          OTHER FREQUENCY:ONCE;?
     Route: 040
     Dates: start: 20200604, end: 20200604
  2. CONVALENSCENT PLASMA [Concomitant]
     Dates: start: 20200605, end: 20200605
  3. REMDESIVIR. [Suspect]
     Active Substance: REMDESIVIR
     Indication: COVID-19
     Route: 040
     Dates: start: 20200605, end: 20200608

REACTIONS (10)
  - Gastrointestinal haemorrhage [None]
  - Haematocrit decreased [None]
  - Dyspnoea [None]
  - Oxygen saturation decreased [None]
  - Hyperkalaemia [None]
  - Blood creatinine increased [None]
  - Thrombocytopenia [None]
  - Blood pressure decreased [None]
  - Acute kidney injury [None]
  - Haemoglobin decreased [None]

NARRATIVE: CASE EVENT DATE: 20200609
